FAERS Safety Report 4863196-3 (Version None)
Quarter: 2005Q4

REPORT INFORMATION
  Report Type: 
  Country: None (occurrence: None)
  Receive Date: 20051201
  Receipt Date: 20050722
  Transmission Date: 20060501
  Serious: No
  Sender: FDA-Public Use
  Company Number: 2005PV000531

PATIENT
  Sex: Female
  Weight: 122.4712 kg

DRUGS (10)
  1. BYETTA [Suspect]
     Indication: DIABETES MELLITUS NON-INSULIN-DEPENDENT
     Dosage: 5 MCG;BID;SC
     Route: 058
     Dates: start: 20050714
  2. NEXIUM [Concomitant]
  3. SYNTHROID [Concomitant]
  4. PLAVIX [Concomitant]
  5. LEXAPRO [Concomitant]
  6. ASPIRIN [Concomitant]
  7. ACCUPRIL [Concomitant]
  8. VYTORIN [Concomitant]
  9. COMPOUND PROGESTRIN [Concomitant]
  10. MELATONIN [Concomitant]

REACTIONS (2)
  - FLATULENCE [None]
  - HERNIA PAIN [None]
